FAERS Safety Report 20589497 (Version 1)
Quarter: 2022Q1

REPORT INFORMATION
  Report Type: Spontaneous
  Country: ES (occurrence: ES)
  Receive Date: 20220314
  Receipt Date: 20220314
  Transmission Date: 20220423
  Serious: Yes (Death, Hospitalization, Other)
  Sender: FDA-Public Use
  Company Number: ES-VELOXIS PHARMACEUTICALS-2022VELES-000142

PATIENT
  Age: 47 Year
  Sex: Female

DRUGS (9)
  1. TACROLIMUS [Suspect]
     Active Substance: TACROLIMUS
     Indication: Prophylaxis against graft versus host disease
     Dosage: UNK
     Route: 065
  2. BUSULFAN [Suspect]
     Active Substance: BUSULFAN
     Indication: Acute myeloid leukaemia
     Dosage: UNK
     Route: 065
  3. BUSULFAN [Suspect]
     Active Substance: BUSULFAN
     Indication: Bone marrow conditioning regimen
  4. VENETOCLAX [Suspect]
     Active Substance: VENETOCLAX
     Indication: Acute myeloid leukaemia
     Dosage: 100 MG DAILY TO A MAXIMUM DOSE OF 400 MG
     Route: 065
  5. FLUDARABINE [Suspect]
     Active Substance: FLUDARABINE PHOSPHATE
     Indication: Bone marrow conditioning regimen
     Dosage: UNK
  6. FLUDARABINE [Suspect]
     Active Substance: FLUDARABINE PHOSPHATE
     Indication: Acute myeloid leukaemia
  7. RAPAMYCIN [Suspect]
     Active Substance: SIROLIMUS
     Indication: Prophylaxis against graft versus host disease
     Dosage: UNK
     Route: 065
  8. AZATHIOPRINE [Suspect]
     Active Substance: AZATHIOPRINE
     Indication: Product used for unknown indication
     Dosage: 75 MG/M2 DAYS 1?7 OF EACH 28-DAY CYCLE
     Route: 065
  9. DECITABINE [Suspect]
     Active Substance: DECITABINE
     Indication: Acute myeloid leukaemia
     Dosage: 20 MILLIGRAM/SQ. METER ? DAYS 1-5 OF EACH28-DAY CYCLE
     Route: 065

REACTIONS (13)
  - Faeces pale [Fatal]
  - Febrile neutropenia [Fatal]
  - Toxicity to various agents [Fatal]
  - Pneumonia [Fatal]
  - Bowel movement irregularity [Fatal]
  - Drug interaction [Fatal]
  - Myelosuppression [Fatal]
  - Escherichia bacteraemia [Fatal]
  - Septic shock [Fatal]
  - Pneumonia klebsiella [Fatal]
  - Systemic candida [Fatal]
  - Splenic abscess [Fatal]
  - Off label use [Unknown]
